FAERS Safety Report 8155121-7 (Version None)
Quarter: 2012Q1

REPORT INFORMATION
  Report Type: 
  Country: None (occurrence: None)
  Receive Date: 20120221
  Receipt Date: 20120213
  Transmission Date: 20120608
  Serious: Yes (Other)
  Sender: FDA-Public Use
  Company Number: EC-ROCHE-1039418

PATIENT
  Sex: Female
  Weight: 59.02 kg

DRUGS (1)
  1. BONIVA [Suspect]
     Indication: OSTEOPOROSIS
     Route: 048
     Dates: start: 20100618

REACTIONS (2)
  - NEPHROLITHIASIS [None]
  - PAIN [None]
